FAERS Safety Report 5023521-X (Version None)
Quarter: 2006Q2

REPORT INFORMATION
  Report Type: 
  Country: None (occurrence: None)
  Receive Date: 20060612
  Receipt Date: 20060522
  Transmission Date: 20061013
  Serious: Yes (Other)
  Sender: FDA-Public Use
  Company Number: JP-JPN-A200601658

PATIENT
  Age: 60 Year
  Sex: Male

DRUGS (8)
  1. MODACIN [Suspect]
     Indication: PNEUMONIA
     Dosage: 1G TWICE PER DAY
     Route: 042
     Dates: start: 20060519, end: 20060522
  2. VEEN F [Concomitant]
     Dates: start: 20060519
  3. KN 3B [Concomitant]
     Dates: start: 20060519
  4. VEEN-D [Concomitant]
     Dates: start: 20060519
  5. AMINO ACID + TOTAL PARENTERAL NUTRITION [Concomitant]
     Dates: start: 20060519
  6. NU-LOTAN [Concomitant]
  7. LIPOVAS [Concomitant]
  8. NORVASC [Concomitant]

REACTIONS (6)
  - ABNORMAL BEHAVIOUR [None]
  - DELIRIUM [None]
  - HALLUCINATION [None]
  - HEPATIC FUNCTION ABNORMAL [None]
  - MEMORY IMPAIRMENT [None]
  - SPEECH DISORDER [None]
